FAERS Safety Report 5201159-9 (Version None)
Quarter: 2007Q1

REPORT INFORMATION
  Report Type: 
  Country: None (occurrence: None)
  Receive Date: 20070108
  Receipt Date: 20061227
  Transmission Date: 20070707
  Serious: Yes (Hospitalization, Other)
  Sender: FDA-Public Use
  Company Number: US-ELI_LILLY_AND_COMPANY-US200610001922

PATIENT
  Age: 66 Year
  Sex: Female
  Weight: 76.4 kg

DRUGS (1)
  1. EVISTA [Suspect]
     Indication: OSTEOPOROSIS
     Route: 048

REACTIONS (2)
  - BREAST CANCER [None]
  - BREAST CANCER FEMALE [None]
